FAERS Safety Report 9319365 (Version 3)
Quarter: 2013Q3

REPORT INFORMATION
  Report Type: Report from Study
  Country: US (occurrence: US)
  Receive Date: 20130530
  Receipt Date: 20130718
  Transmission Date: 20140515
  Serious: Yes (Other)
  Sender: FDA-Public Use
  Company Number: US-ROCHE-1228417

PATIENT
  Age: 57 Year
  Sex: 0

DRUGS (4)
  1. BEVACIZUMAB [Suspect]
     Indication: NON-SMALL CELL LUNG CANCER
     Dosage: OVER 30 MINS ON DAY1, DATE OF LAST DOSE : 29/MAY/2012
     Route: 042
     Dates: start: 20120109
  2. CARBOPLATIN [Suspect]
     Indication: NON-SMALL CELL LUNG CANCER
     Dosage: AUC=6, OVER 30 MIN ON DAY 1 FOR CYCLE 1-6
     Route: 042
     Dates: start: 20120109
  3. CIXUTUMUMAB [Suspect]
     Indication: NON-SMALL CELL LUNG CANCER
     Dosage: OVER 1 HR ON DAY 1, 8 AND 15, DATE OF LAST DOSE : 29/MAY/2012
     Route: 042
     Dates: start: 20120109
  4. PACLITAXEL [Suspect]
     Indication: NON-SMALL CELL LUNG CANCER
     Dosage: OVER 3 HRS ON DAY 1 FOR CYCLE 1-6
     Route: 042
     Dates: start: 20120109

REACTIONS (1)
  - Muscle spasms [Recovered/Resolved]
